FAERS Safety Report 5624981-3 (Version None)
Quarter: 2008Q1

REPORT INFORMATION
  Report Type: 
  Country: None (occurrence: None)
  Receive Date: 20080213
  Receipt Date: 20080205
  Transmission Date: 20080703
  Serious: Yes (Other)
  Sender: FDA-Public Use
  Company Number: UY-PFIZER INC-2008003666

PATIENT
  Sex: Female

DRUGS (4)
  1. LYRICA [Suspect]
     Indication: POLYNEUROPATHY
     Route: 048
  2. TEGRETOL [Concomitant]
     Route: 048
  3. ALPRAZOLAM [Concomitant]
     Route: 048
  4. SAROTEX [Concomitant]
     Route: 048

REACTIONS (6)
  - ABDOMINAL DISTENSION [None]
  - ANAL SPHINCTER ATONY [None]
  - INCREASED APPETITE [None]
  - SPINAL COLUMN STENOSIS [None]
  - URINARY INCONTINENCE [None]
  - WEIGHT INCREASED [None]
